FAERS Safety Report 7482755-5 (Version None)
Quarter: 2011Q2

REPORT INFORMATION
  Report Type: 
  Country: None (occurrence: None)
  Receive Date: 20110516
  Receipt Date: 20110513
  Transmission Date: 20111010
  Serious: Yes (Other)
  Sender: FDA-Public Use
  Company Number: VE-PFIZER INC-2011082475

PATIENT
  Age: 67 Year
  Sex: Male

DRUGS (6)
  1. COMBAREN [Concomitant]
     Indication: ANALGESIC THERAPY
     Dosage: 50 MG, 3X/DAY
     Route: 048
     Dates: start: 20100101
  2. MORPHINE [Concomitant]
     Indication: ANALGESIC THERAPY
     Dosage: 5 ML, 3X/DAY
     Route: 048
  3. GLAFORNIL [Concomitant]
     Indication: DIABETES MELLITUS
     Dosage: 500 MG, 1X/DAY
     Route: 048
     Dates: start: 20040101
  4. HYPERLIPEN [Concomitant]
     Indication: DIABETES MELLITUS
     Dosage: 100 MG, 1X/DAY
     Route: 048
     Dates: start: 20040101
  5. SITAGLIPTIN [Concomitant]
     Indication: DIABETES MELLITUS
     Dosage: 100 MG, 1X/DAY
     Route: 048
     Dates: start: 20110301
  6. LIPITOR [Suspect]
     Indication: HYPERCHOLESTEROLAEMIA
     Dosage: 40 MG, 1X/DAY
     Route: 048
     Dates: start: 20080101, end: 20110201

REACTIONS (1)
  - RECTAL CANCER [None]
